FAERS Safety Report 21335208 (Version 1)
Quarter: 2022Q3

REPORT INFORMATION
  Report Type: Report from Study
  Country: PR (occurrence: PR)
  Receive Date: 20220915
  Receipt Date: 20220915
  Transmission Date: 20221027
  Serious: Yes (Other)
  Sender: FDA-Public Use
  Company Number: PR-JNJFOC-20220925342

PATIENT
  Age: 67 Year
  Sex: Male

DRUGS (1)
  1. APALUTAMIDE [Suspect]
     Active Substance: APALUTAMIDE
     Indication: Prostate cancer
     Route: 048
     Dates: start: 20220720

REACTIONS (4)
  - Erectile dysfunction [Not Recovered/Not Resolved]
  - Hot flush [Not Recovered/Not Resolved]
  - Hyperhidrosis [Not Recovered/Not Resolved]
  - Mood swings [Not Recovered/Not Resolved]
